FAERS Safety Report 9091679 (Version 1)
Quarter: 2013Q1

REPORT INFORMATION
  Report Type: Report from Study
  Country: US (occurrence: US)
  Receive Date: 20130201
  Receipt Date: 20130201
  Transmission Date: 20140127
  Serious: No
  Sender: FDA-Public Use
  Company Number: US-ABBOTT-12P-163-1018892-00

PATIENT
  Age: 50 Year
  Sex: Female

DRUGS (8)
  1. HUMIRA [Suspect]
     Indication: ANKYLOSING SPONDYLITIS
     Dosage: INITIAL DOSE
     Dates: start: 20121125
  2. HYDROCODONE [Concomitant]
     Indication: PAIN
     Dosage: 5/500 EVERY 4-6 HOURS
  3. LAMICTAL [Concomitant]
     Indication: BIPOLAR DISORDER
     Dosage: AT BEDTIME
  4. DEPAKOTE [Concomitant]
     Indication: BIPOLAR DISORDER
     Dosage: AT BEDTIME
  5. ABILIFY [Concomitant]
     Indication: BIPOLAR DISORDER
     Dosage: AT BEDTIME
  6. BYSTOLIC [Concomitant]
     Indication: HYPERTENSION
     Dosage: IN THE MORNING
  7. CLONIDINE [Concomitant]
     Indication: HYPERTENSION
     Dosage: IN THE MORNING
  8. TOPAMAX [Concomitant]
     Indication: TARSAL TUNNEL SYNDROME
     Dosage: 2-3 TIMES DAILY

REACTIONS (3)
  - Injection site pain [Recovered/Resolved]
  - Injection site haemorrhage [Recovered/Resolved]
  - Headache [Not Recovered/Not Resolved]
